FAERS Safety Report 24023779 (Version 7)
Quarter: 2024Q3

REPORT INFORMATION
  Report Type: Report from Study
  Country: US (occurrence: US)
  Receive Date: 20240627
  Receipt Date: 20240710
  Transmission Date: 20241016
  Serious: No
  Sender: ROCHE
  Company Number: US-ROCHE-3382312

PATIENT
  Age: 45 Year
  Sex: Female
  Weight: 124.74 kg

DRUGS (19)
  1. PHESGO [Suspect]
     Active Substance: HYALURONIDASE-ZZXF\PERTUZUMAB\TRASTUZUMAB
     Indication: Breast cancer female
     Dosage: PER 10 MG, 1200 MG?DATE OF SERVICE: 07/JUN/2023, 28/JUN/2023, 09/AUG/2023, 30/AUG/2023, 22/SEP/2023,
     Route: 058
  2. PHESGO [Suspect]
     Active Substance: HYALURONIDASE-ZZXF\PERTUZUMAB\TRASTUZUMAB
     Indication: Intraductal proliferative breast lesion
  3. XGEVA [Concomitant]
     Active Substance: DENOSUMAB
  4. VENTOLIN HFA [Concomitant]
     Active Substance: ALBUTEROL SULFATE
     Dosage: INHALE 2 PUFFS EVERY 6 HOURS AS NEEDED AS FOR WHEEZING
     Dates: start: 20181227
  5. WELLBUTRIN XL [Concomitant]
     Active Substance: BUPROPION HYDROCHLORIDE
     Route: 048
     Dates: start: 20200724
  6. VITAMIN D3 [Concomitant]
     Active Substance: CHOLECALCIFEROL
     Dosage: 50000 UNITS, CAPSULE
     Route: 048
     Dates: start: 20200724
  7. NEURONTIN [Concomitant]
     Active Substance: GABAPENTIN
     Dosage: 100 MG CAPSULE?AS NEEDED FOR PAIN
     Dates: start: 20230324
  8. JARDIANCE [Concomitant]
     Active Substance: EMPAGLIFLOZIN
     Route: 048
     Dates: start: 20200724
  9. FEMARA [Concomitant]
     Active Substance: LETROZOLE
     Route: 048
     Dates: start: 20230228
  10. EMLA [Concomitant]
     Active Substance: LIDOCAINE\PRILOCAINE
     Dosage: 2.5-2.5 % CREAM, APPLY SMALL AMOUNT TO PORT SITE COVER BAND AID??14/DEC/2022
  11. COZAAR [Concomitant]
     Active Substance: LOSARTAN POTASSIUM
     Dosage: 50 MG TABLET
     Route: 048
     Dates: start: 20221223
  12. MAGNESIUM OXIDE [Concomitant]
     Active Substance: MAGNESIUM OXIDE
     Dosage: 500 MG TABLET
     Route: 048
  13. MOBIC [Concomitant]
     Active Substance: MELOXICAM
     Dosage: 15 MG TABLET
     Route: 048
  14. OZEMPIC [Concomitant]
     Active Substance: SEMAGLUTIDE
     Dosage: 1 MG/DOSE PEN INJECTOR
     Route: 058
     Dates: start: 20221218
  15. IBRANCE [Concomitant]
     Active Substance: PALBOCICLIB
     Dosage: 125 MG CAPSULE
     Route: 048
  16. ZOCOR [Concomitant]
     Active Substance: SIMVASTATIN
     Dosage: 10 MG TABLET
     Route: 048
     Dates: start: 20220721
  17. AMBIEN [Concomitant]
     Active Substance: ZOLPIDEM TARTRATE
     Dosage: 5 MG TABLET NIGHT
     Dates: start: 20230308
  18. KENALOG [Concomitant]
     Active Substance: TRIAMCINOLONE ACETONIDE
     Dosage: APPLY TOPICALLY TWO TIMES A DAY?0.5% OINTMENT
  19. TOPROL XL [Concomitant]
     Active Substance: METOPROLOL SUCCINATE

REACTIONS (5)
  - Neutrophil count decreased [Unknown]
  - White blood cell count decreased [Unknown]
  - Blood glucose increased [Unknown]
  - Aspartate aminotransferase increased [Unknown]
  - Alanine aminotransferase increased [Unknown]
